FAERS Safety Report 6885840-1 (Version None)
Quarter: 2010Q3

REPORT INFORMATION
  Report Type: 
  Country: None (occurrence: None)
  Receive Date: 20100729
  Receipt Date: 20080725
  Transmission Date: 20110219
  Serious: No
  Sender: FDA-Public Use
  Company Number: US-PFIZER INC-2008047948

PATIENT
  Sex: Male
  Weight: 79.5 kg

DRUGS (8)
  1. CELEBREX [Suspect]
     Indication: PAIN
     Route: 048
     Dates: start: 20070801
  2. CELEBREX [Suspect]
     Indication: REPETITIVE STRAIN INJURY
  3. ZOLOFT [Suspect]
     Indication: DEPRESSION
     Route: 048
  4. ZOLOFT [Suspect]
     Indication: ANXIETY
  5. ADVAIR DISKUS 100/50 [Concomitant]
     Indication: ASTHMA
  6. AMITRIPTYLINE HYDROCHLORIDE [Concomitant]
     Indication: SLEEP DISORDER
  7. DARVOCET [Concomitant]
     Indication: PAIN
  8. LYRICA [Concomitant]

REACTIONS (2)
  - DRUG INEFFECTIVE [None]
  - FIBROMYALGIA [None]
